FAERS Safety Report 21926901 (Version 7)
Quarter: 2024Q1

REPORT INFORMATION
  Report Type: Spontaneous
  Country: US (occurrence: US)
  Receive Date: 20230130
  Receipt Date: 20240126
  Transmission Date: 20240409
  Serious: No
  Sender: FDA-Public Use
  Company Number: US-PFIZER INC-PV202300016605

PATIENT
  Age: 71 Year
  Sex: Male

DRUGS (1)
  1. IBRANCE [Suspect]
     Active Substance: PALBOCICLIB
     Indication: Metastases to lung
     Dosage: 125 MG
     Dates: start: 20230217

REACTIONS (6)
  - Alopecia [Unknown]
  - Fatigue [Unknown]
  - Discomfort [Unknown]
  - Sinusitis [Unknown]
  - Pain [Unknown]
  - Sleep disorder [Unknown]
